FAERS Safety Report 7266450-3 (Version None)
Quarter: 2011Q1

REPORT INFORMATION
  Report Type: 
  Country: None (occurrence: None)
  Receive Date: 20110131
  Receipt Date: 20110117
  Transmission Date: 20110831
  Serious: Yes (Death, Hospitalization)
  Sender: FDA-Public Use
  Company Number: DE-CELGENEUS-062-21880-11011592

PATIENT
  Age: 73 Year
  Sex: Male

DRUGS (2)
  1. REVLIMID [Suspect]
     Indication: MULTIPLE MYELOMA
     Route: 048
     Dates: start: 20101022
  2. REVLIMID [Suspect]
     Route: 048
     Dates: start: 20101104

REACTIONS (2)
  - ISCHAEMIC CEREBRAL INFARCTION [None]
  - STATUS EPILEPTICUS [None]
